FAERS Safety Report 13815670 (Version 1)
Quarter: 2017Q3

REPORT INFORMATION
  Report Type: Spontaneous
  Country: FR (occurrence: FR)
  Receive Date: 20170731
  Receipt Date: 20170731
  Transmission Date: 20171127
  Serious: Yes (Hospitalization)
  Sender: FDA-Public Use
  Company Number: FR-MYLANLABS-2017M1045161

PATIENT

DRUGS (5)
  1. QUETIAPINE MYLAN PHARMA LP 50 MG, COMPRIM? ? LIB?RATION PROLONG?E [Suspect]
     Active Substance: QUETIAPINE
     Dosage: 650 MG, UNK
     Dates: start: 201706
  2. QUETIAPINE MYLAN PHARMA LP 50 MG, COMPRIM? ? LIB?RATION PROLONG?E [Suspect]
     Active Substance: QUETIAPINE
     Dosage: 700 MG, UNK
     Dates: start: 201705
  3. QUETIAPINE MYLAN PHARMA LP 50 MG, COMPRIM? ? LIB?RATION PROLONG?E [Suspect]
     Active Substance: QUETIAPINE
     Dosage: 650 MG, UNK
  4. QUETIAPINE MYLAN PHARMA LP 50 MG, COMPRIM? ? LIB?RATION PROLONG?E [Suspect]
     Active Substance: QUETIAPINE
     Dosage: 600 MG, UNK
     Dates: start: 201707
  5. QUETIAPINE MYLAN PHARMA LP 50 MG, COMPRIM? ? LIB?RATION PROLONG?E [Suspect]
     Active Substance: QUETIAPINE
     Indication: INSOMNIA
     Dosage: 800 MG, QD

REACTIONS (4)
  - Intentional product use issue [Unknown]
  - Constipation [Recovered/Resolved]
  - Off label use [Unknown]
  - Infection [Unknown]
